FAERS Safety Report 25449535 (Version 2)
Quarter: 2025Q3

REPORT INFORMATION
  Report Type: Spontaneous
  Country: EU (occurrence: EU)
  Receive Date: 20250618
  Receipt Date: 20250903
  Transmission Date: 20251021
  Serious: Yes (Other)
  Sender: SANOFI AVENTIS
  Company Number: None

PATIENT
  Age: 72 Year
  Sex: Female

DRUGS (10)
  1. GLIMEPIRIDE [Suspect]
     Active Substance: GLIMEPIRIDE
     Indication: Type 2 diabetes mellitus
     Dosage: 1 DF, QD
     Route: 048
  2. LANTUS [Suspect]
     Active Substance: INSULIN GLARGINE
     Indication: Type 2 diabetes mellitus
     Dosage: 16 IU, QD
     Route: 058
  3. HYDROCHLOROTHIAZIDE\IRBESARTAN [Concomitant]
     Active Substance: HYDROCHLOROTHIAZIDE\IRBESARTAN
  4. CALCIUM\CHOLECALCIFEROL [Concomitant]
     Active Substance: CALCIUM\CHOLECALCIFEROL
  5. XALATAN [Concomitant]
     Active Substance: LATANOPROST
  6. ATORVASTATIN [Concomitant]
     Active Substance: ATORVASTATIN
  7. CARDURA [Concomitant]
     Active Substance: DOXAZOSIN MESYLATE
  8. LEVOTHYROXINE SODIUM [Concomitant]
     Active Substance: LEVOTHYROXINE SODIUM
  9. ALLOPURINOL [Concomitant]
     Active Substance: ALLOPURINOL
  10. ISOPTIN [Concomitant]
     Active Substance: VERAPAMIL HYDROCHLORIDE

REACTIONS (5)
  - Hyperinsulinaemic hypoglycaemia [Recovered/Resolved]
  - Agitation [Recovered/Resolved]
  - Salivary hypersecretion [Recovered/Resolved]
  - Disorientation [Recovered/Resolved]
  - Coma scale abnormal [Recovered/Resolved]

NARRATIVE: CASE EVENT DATE: 20181111
